FAERS Safety Report 14512747 (Version 1)
Quarter: 2018Q1

REPORT INFORMATION
  Report Type: Spontaneous
  Country: US (occurrence: US)
  Receive Date: 20180209
  Receipt Date: 20180209
  Transmission Date: 20180509
  Serious: No
  Sender: FDA-Public Use
  Company Number: US-VIFOR (INTERNATIONAL) INC.-VIT-2018-00761

PATIENT
  Age: 89 Year
  Sex: Female
  Weight: 58.57 kg

DRUGS (12)
  1. VELTASSA [Suspect]
     Active Substance: PATIROMER
     Indication: HYPERKALAEMIA
     Route: 048
     Dates: start: 20160913
  2. FUROSEMIDE. [Concomitant]
     Active Substance: FUROSEMIDE
  3. PARACETAMOL~~HYDROCODONE BITARTRATE [Concomitant]
  4. VELTASSA [Suspect]
     Active Substance: PATIROMER
  5. ACETYLSALICYLIC ACID [Concomitant]
     Active Substance: ASPIRIN
  6. ISOSORBIDE MONONITRATE. [Concomitant]
     Active Substance: ISOSORBIDE MONONITRATE
  7. GABAPENTIN. [Concomitant]
     Active Substance: GABAPENTIN
  8. ALPHAGAN P [Concomitant]
     Active Substance: BRIMONIDINE TARTRATE
  9. FERROUS SULFATE. [Concomitant]
     Active Substance: FERROUS SULFATE
  10. KAYEXALATE [Concomitant]
     Active Substance: SODIUM POLYSTYRENE SULFONATE
  11. PARACETAMOL [Concomitant]
     Active Substance: ACETAMINOPHEN
  12. CALTRATE 600+D [Concomitant]

REACTIONS (1)
  - Gingival recession [Not Recovered/Not Resolved]

NARRATIVE: CASE EVENT DATE: 201704
